FAERS Safety Report 6493652-6 (Version None)
Quarter: 2009Q4

REPORT INFORMATION
  Report Type: 
  Country: None (occurrence: None)
  Receive Date: 20091214
  Receipt Date: 20091204
  Transmission Date: 20100525
  Serious: Yes (Congenital Anomaly)
  Sender: FDA-Public Use
  Company Number: B0516713A

PATIENT

DRUGS (8)
  1. ONDANSETRON [Suspect]
     Dosage: 8MG PER DAY
     Dates: start: 20080112, end: 20080114
  2. ONDANSETRON [Suspect]
     Dosage: 12MG PER DAY
     Dates: start: 20080114
  3. CYCLIZINE [Concomitant]
     Dosage: 150MG PER DAY
     Dates: start: 20080109, end: 20080114
  4. PROMETHAZINE [Concomitant]
     Dosage: 75MG PER DAY
     Dates: start: 20080109, end: 20080110
  5. METOCLOPRAMIDE [Concomitant]
     Dosage: 30MG PER DAY
     Dates: start: 20080109, end: 20080115
  6. METOCLOPRAMIDE [Concomitant]
     Dosage: 30MG PER DAY
     Dates: start: 20080116
  7. FOLIC ACID [Concomitant]
     Dosage: 5MG PER DAY
  8. THIAMINE [Concomitant]
     Dosage: 25MG PER DAY
     Dates: start: 20080114

REACTIONS (5)
  - FOETAL GROWTH RETARDATION [None]
  - FOETAL MALFORMATION [None]
  - GASTROSCHISIS [None]
  - HEART DISEASE CONGENITAL [None]
  - SPINAL DEFORMITY [None]
